FAERS Safety Report 5115080-8 (Version None)
Quarter: 2006Q3

REPORT INFORMATION
  Report Type: 
  Country: None (occurrence: None)
  Receive Date: 20060925
  Receipt Date: 20060925
  Transmission Date: 20061208
  Serious: Yes (Hospitalization)
  Sender: FDA-Public Use
  Company Number: None

PATIENT
  Sex: Female
  Weight: 106.1 kg

DRUGS (4)
  1. CARBOPLATIN [Suspect]
     Dosage: 645 MG  SEE IMAGE
  2. TAXOL [Suspect]
     Dosage: 270 MG  SEE IMAGE
  3. NEULASTA [Concomitant]
  4. PERCOCET [Concomitant]

REACTIONS (11)
  - ANAEMIA [None]
  - DECREASED APPETITE [None]
  - FATIGUE [None]
  - NEUTROPHIL COUNT DECREASED [None]
  - PHARYNGOLARYNGEAL PAIN [None]
  - PLATELET COUNT DECREASED [None]
  - PRODUCTIVE COUGH [None]
  - PYREXIA [None]
  - RHINORRHOEA [None]
  - SPUTUM DISCOLOURED [None]
  - WHITE BLOOD CELL COUNT DECREASED [None]
